FAERS Safety Report 16826404 (Version 1)
Quarter: 2019Q3

REPORT INFORMATION
  Report Type: Spontaneous
  Country: US (occurrence: US)
  Receive Date: 20190919
  Receipt Date: 20190919
  Transmission Date: 20191005
  Serious: Yes (Other)
  Sender: FDA-Public Use
  Company Number: US-PFIZER INC-2018014764

PATIENT
  Age: 39 Year
  Sex: Female

DRUGS (1)
  1. XELJANZ XR [Suspect]
     Active Substance: TOFACITINIB CITRATE
     Indication: RHEUMATOID ARTHRITIS
     Dosage: 11 MG, DAILY
     Route: 048
     Dates: start: 20170501

REACTIONS (10)
  - Myalgia [Unknown]
  - Anxiety [Unknown]
  - Diarrhoea [Unknown]
  - Arthralgia [Unknown]
  - Joint swelling [Unknown]
  - Hypoaesthesia [Unknown]
  - Nephrolithiasis [Unknown]
  - Back pain [Unknown]
  - Depression [Unknown]
  - Paraesthesia [Unknown]
